FAERS Safety Report 5958221-2 (Version None)
Quarter: 2008Q4

REPORT INFORMATION
  Report Type: 
  Country: None (occurrence: None)
  Receive Date: 20081117
  Receipt Date: 20081117
  Transmission Date: 20090506
  Serious: Yes (Other)
  Sender: FDA-Public Use
  Company Number: None

PATIENT
  Age: 17 Month
  Sex: Male
  Weight: 12.2471 kg

DRUGS (1)
  1. PULMICORT [Suspect]
     Indication: ASTHMA
     Dosage: 1 2.5MG RESPULE TWICE PER DAY INHAL
     Route: 055
     Dates: start: 20081111, end: 20081114

REACTIONS (5)
  - DERMATITIS DIAPER [None]
  - DIARRHOEA [None]
  - INSOMNIA [None]
  - MIDDLE INSOMNIA [None]
  - PAIN [None]
